FAERS Safety Report 6442120-6 (Version None)
Quarter: 2009Q4

REPORT INFORMATION
  Report Type: 
  Country: None (occurrence: None)
  Receive Date: 20091116
  Receipt Date: 20091104
  Transmission Date: 20100525
  Serious: Yes (Hospitalization)
  Sender: FDA-Public Use
  Company Number: PHEH2009US14681

PATIENT
  Sex: Male

DRUGS (1)
  1. EXJADE [Suspect]
     Dosage: 1000 MG, QD
     Route: 048
     Dates: start: 20060508

REACTIONS (4)
  - CHOLELITHIASIS [None]
  - FEELING ABNORMAL [None]
  - HYPERBILIRUBINAEMIA [None]
  - PANCREATITIS [None]
